FAERS Safety Report 4618723-8 (Version None)
Quarter: 2005Q1

REPORT INFORMATION
  Report Type: 
  Country: None (occurrence: None)
  Receive Date: 20050323
  Receipt Date: 20050309
  Transmission Date: 20050727
  Serious: Yes (Other)
  Sender: FDA-Public Use
  Company Number: USA050392884

PATIENT
  Age: 14 Year
  Sex: Male
  Weight: 48 kg

DRUGS (1)
  1. STRATTERA [Suspect]
     Dosage: 78 MG/ 1 DAY
     Dates: start: 20040428

REACTIONS (1)
  - ASPARTATE AMINOTRANSFERASE INCREASED [None]
